FAERS Safety Report 4289089-0 (Version None)
Quarter: 2004Q1

REPORT INFORMATION
  Report Type: 
  Country: None (occurrence: None)
  Receive Date: 20040126
  Receipt Date: 20031014
  Transmission Date: 20041129
  Serious: No
  Sender: FDA-Public Use
  Company Number: USA030331274

PATIENT
  Age: 68 Year
  Sex: Female
  Weight: 83 kg

DRUGS (2)
  1. FORTEO [Suspect]
     Indication: OSTEOPOROSIS
     Dosage: 20 UG/DAY
     Dates: start: 20021101, end: 20030919
  2. TYLENOL [Concomitant]

REACTIONS (9)
  - DERMATITIS EXFOLIATIVE [None]
  - DIFFICULTY IN WALKING [None]
  - ERYTHEMA [None]
  - INJECTION SITE STINGING [None]
  - KIDNEY INFECTION [None]
  - MOVEMENT DISORDER [None]
  - MUSCLE CRAMP [None]
  - MUSCLE SPASMS [None]
  - TENDON DISORDER [None]
